FAERS Safety Report 8134123-0 (Version None)
Quarter: 2012Q1

REPORT INFORMATION
  Report Type: 
  Country: None (occurrence: None)
  Receive Date: 20120214
  Receipt Date: 20120207
  Transmission Date: 20120608
  Serious: Yes (Hospitalization)
  Sender: FDA-Public Use
  Company Number: FR-SHIRE-SPV1-2012-00039

PATIENT
  Sex: Female
  Weight: 53 kg

DRUGS (5)
  1. PIASCLEDINE                        /01305801/ [Concomitant]
     Dosage: 1 G, 1X/DAY:QD
     Route: 065
  2. CALTRATE                           /00751519/ [Concomitant]
     Indication: OSTEOPOROSIS
     Dosage: 600 MG, 1X/DAY:QD
     Route: 065
  3. AUGMENTIN '125' [Concomitant]
     Indication: TOOTH INFECTION
     Dosage: UNK, UNKNOWN
     Route: 065
     Dates: start: 20111223, end: 20120102
  4. VPRIV [Suspect]
     Indication: GAUCHER'S DISEASE
     Dosage: UNK, UNKNOWN
     Route: 041
     Dates: start: 20111006
  5. BIRODOGYL [Concomitant]
     Indication: TOOTH INFECTION
     Dosage: UNK, UNKNOWN
     Route: 065
     Dates: start: 20111220, end: 20111228

REACTIONS (4)
  - PALPITATIONS [None]
  - TACHYCARDIA [None]
  - CHILLS [None]
  - INFUSION RELATED REACTION [None]
